FAERS Safety Report 24879985 (Version 1)
Quarter: 2025Q1

REPORT INFORMATION
  Report Type: Spontaneous
  Country: US (occurrence: US)
  Receive Date: 20250123
  Receipt Date: 20250123
  Transmission Date: 20250409
  Serious: Yes (Congenital Anomaly, Other)
  Sender: FOUNDATION CONSUMER HEALTHCARE
  Company Number: US-FOUNDATIONCONSUMERHC-2025-US-002128

PATIENT
  Age: 8 Month
  Sex: Female
  Weight: 5.9 kg

DRUGS (1)
  1. AFTERA [Suspect]
     Active Substance: LEVONORGESTREL
     Indication: Post coital contraception

REACTIONS (2)
  - Seizure [Unknown]
  - Encephalocele [Not Recovered/Not Resolved]

NARRATIVE: CASE EVENT DATE: 20240515
